FAERS Safety Report 7025113-X (Version None)
Quarter: 2010Q4

REPORT INFORMATION
  Report Type: 
  Country: None (occurrence: None)
  Receive Date: 20101001
  Receipt Date: 20100920
  Transmission Date: 20110411
  Serious: Yes (Death, Other)
  Sender: FDA-Public Use
  Company Number: US-PFIZER INC-2010099667

PATIENT
  Sex: Female
  Weight: 109.31 kg

DRUGS (12)
  1. REVATIO [Suspect]
     Indication: PULMONARY ARTERIAL HYPERTENSION
     Dosage: 20 MG, 3X/DAY
     Dates: start: 20091222, end: 20100202
  2. ISOSORBIDE [Concomitant]
     Dosage: UNK
     Dates: start: 20100203
  3. ILOPROST TROMETAMOL [Concomitant]
     Dates: end: 20100202
  4. OMEPRAZOLE [Concomitant]
  5. LISINOPRIL [Concomitant]
  6. CELEBREX [Concomitant]
  7. MECLIZINE [Concomitant]
  8. VICODIN [Concomitant]
  9. SIMVASTATIN [Concomitant]
  10. METFORMIN [Concomitant]
  11. ALPRAZOLAM [Concomitant]
  12. BISOPROLOL FUMARATE AND HYDROCHLOROTHIAZIDE [Concomitant]

REACTIONS (1)
  - DEATH [None]
